FAERS Safety Report 6789694-3 (Version None)
Quarter: 2010Q2

REPORT INFORMATION
  Report Type: 
  Country: None (occurrence: None)
  Receive Date: 20100624
  Receipt Date: 20100618
  Transmission Date: 20101027
  Serious: Yes (Death)
  Sender: FDA-Public Use
  Company Number: US-CELGENEUS-163-C5013-10062012

PATIENT
  Sex: Male
  Weight: 97.5 kg

DRUGS (1)
  1. CC-5013 [Suspect]
     Indication: AMYLOIDOSIS
     Route: 048
     Dates: start: 20100527, end: 20100615

REACTIONS (2)
  - CARDIAC ARREST [None]
  - RESPIRATORY FAILURE [None]
